FAERS Safety Report 23263297 (Version 1)
Quarter: 2023Q4

REPORT INFORMATION
  Report Type: Spontaneous
  Country: US (occurrence: None)
  Receive Date: 20231205
  Receipt Date: 20231205
  Transmission Date: 20240110
  Serious: Yes (Hospitalization)
  Sender: FDA-Public Use
  Company Number: None

PATIENT
  Sex: Female

DRUGS (17)
  1. DIMETHYL FUMARATE [Suspect]
     Active Substance: DIMETHYL FUMARATE
  2. AMLODIPINE TAB [Concomitant]
  3. ATENOLOL [Concomitant]
     Active Substance: ATENOLOL
  4. BACLOFEN [Concomitant]
  5. CRESTOR TAB [Concomitant]
  6. CYANOCOBALAM INJ [Concomitant]
  7. DIAZEPAM [Concomitant]
     Active Substance: DIAZEPAM
  8. LIPITOR [Concomitant]
  9. LORTAB ELX [Concomitant]
  10. LYRICA CAP [Concomitant]
  11. NEXISUM CAP [Concomitant]
  12. NITROFURANTN CAP [Concomitant]
  13. XYCODONE TAB [Concomitant]
  14. PROTONIX [Concomitant]
  15. SERTRALINE TAB [Concomitant]
  16. VITAMIN D CAP [Concomitant]
  17. ZANAFLEX CAP [Concomitant]

REACTIONS (3)
  - Fall [None]
  - Loss of consciousness [None]
  - Product administered by wrong person [None]
